FAERS Safety Report 16678745 (Version 2)
Quarter: 2019Q3

REPORT INFORMATION
  Report Type: Spontaneous
  Country: US (occurrence: US)
  Receive Date: 20190807
  Receipt Date: 20190913
  Transmission Date: 20191004
  Serious: No
  Sender: FDA-Public Use
  Company Number: US-BAUSCH-BL-2019-020464

PATIENT
  Age: 68 Year
  Sex: Female
  Weight: 81.72 kg

DRUGS (3)
  1. METFORMIN [Concomitant]
     Active Substance: METFORMIN HYDROCHLORIDE
     Indication: PRODUCT USED FOR UNKNOWN INDICATION
     Route: 048
  2. LOTEMAX [Suspect]
     Active Substance: LOTEPREDNOL ETABONATE
     Indication: POST PROCEDURAL INFLAMMATION
     Dosage: IN THE RIGHT EYE
     Route: 047
     Dates: start: 20190621, end: 20190621
  3. LOTEMAX [Suspect]
     Active Substance: LOTEPREDNOL ETABONATE
     Dosage: IN THE RIGHT EYE
     Route: 047
     Dates: start: 20190622, end: 20190624

REACTIONS (2)
  - Tinnitus [Recovered/Resolved]
  - Product prescribing error [Unknown]

NARRATIVE: CASE EVENT DATE: 20190621
